FAERS Safety Report 9236982 (Version 1)
Quarter: 2013Q2

REPORT INFORMATION
  Report Type: Spontaneous
  Country: US (occurrence: US)
  Receive Date: 20130417
  Receipt Date: 20130417
  Transmission Date: 20140414
  Serious: No
  Sender: FDA-Public Use
  Company Number: US-PFIZER INC-2013120746

PATIENT
  Age: 75 Year
  Sex: Male

DRUGS (8)
  1. NEURONTIN [Suspect]
     Indication: HYPOAESTHESIA
     Dosage: UNK
  2. NEURONTIN [Suspect]
     Indication: PARAESTHESIA
  3. NEURONTIN [Suspect]
     Indication: GAIT DISTURBANCE
  4. NEURONTIN [Suspect]
     Indication: PAIN
  5. MORPHINE SULFATE [Suspect]
     Indication: HYPOAESTHESIA
     Dosage: UNK
  6. MORPHINE SULFATE [Suspect]
     Indication: PARAESTHESIA
  7. MORPHINE SULFATE [Suspect]
     Indication: GAIT DISTURBANCE
  8. MORPHINE SULFATE [Suspect]
     Indication: PAIN

REACTIONS (2)
  - Drug ineffective [Unknown]
  - Fatigue [Unknown]
